FAERS Safety Report 6808681-X (Version None)
Quarter: 2010Q2

REPORT INFORMATION
  Report Type: 
  Country: None (occurrence: None)
  Receive Date: 20100629
  Receipt Date: 20090830
  Transmission Date: 20101027
  Serious: No
  Sender: FDA-Public Use
  Company Number: US-PFIZER INC-2009240890

PATIENT
  Sex: Female
  Weight: 56.2 kg

DRUGS (3)
  1. XANAX [Suspect]
     Indication: ANXIETY
     Dosage: 0.5 MG, UNK
     Route: 048
  2. VALSARTAN [Concomitant]
     Indication: HYPERTENSION
  3. VITAMIN B-12 [Concomitant]

REACTIONS (6)
  - BALANCE DISORDER [None]
  - DRUG EFFECT DECREASED [None]
  - DRUG INEFFECTIVE [None]
  - HEARING IMPAIRED [None]
  - MALAISE [None]
  - WEIGHT DECREASED [None]
